FAERS Safety Report 18275869 (Version 6)
Quarter: 2020Q4

REPORT INFORMATION
  Report Type: Report from Study
  Country: None (occurrence: CH)
  Receive Date: 20200917
  Receipt Date: 20201026
  Transmission Date: 20210113
  Serious: Yes (Hospitalization)
  Sender: FDA-Public Use
  Company Number: CH-ABBVIE-20K-151-3567994-00

PATIENT
  Age: 67 Year
  Sex: Male

DRUGS (3)
  1. DUODOPA [Suspect]
     Active Substance: CARBIDOPA\LEVODOPA
     Dosage: MD: 6 ML, CRD: 3.8 ML/H, CRN: 2.2 ML/H, ED: 1 ML?24 H THERAPY
     Route: 050
     Dates: start: 20181108, end: 20190418
  2. DUODOPA [Suspect]
     Active Substance: CARBIDOPA\LEVODOPA
     Indication: PARKINSON^S DISEASE
     Route: 050
     Dates: start: 20171115, end: 20181108
  3. DUODOPA [Suspect]
     Active Substance: CARBIDOPA\LEVODOPA
     Dosage: MD: 6 ML, CRD: 4 ML/H, CRN: 2.4 ML/H, ED: 1 ML?24 H THERAPY
     Route: 050
     Dates: start: 20190418

REACTIONS (4)
  - General physical health deterioration [Not Recovered/Not Resolved]
  - Respiratory tract inflammation [Unknown]
  - Device issue [Recovered/Resolved]
  - Pneumonia [Not Recovered/Not Resolved]

NARRATIVE: CASE EVENT DATE: 20200914
